FAERS Safety Report 13983882 (Version 1)
Quarter: 2017Q3

REPORT INFORMATION
  Report Type: Other
  Country: AU (occurrence: AU)
  Receive Date: 20170918
  Receipt Date: 20170918
  Transmission Date: 20171128
  Serious: Yes (Other)
  Sender: FDA-Public Use
  Company Number: AU-ALSI-201700301

PATIENT
  Age: 43 Year
  Sex: Male

DRUGS (1)
  1. OXYGEN 100% [Suspect]
     Active Substance: OXYGEN
     Indication: DIABETIC FOOT
     Route: 003

REACTIONS (2)
  - Diabetic retinopathy [Not Recovered/Not Resolved]
  - Off label use [Not Recovered/Not Resolved]
